FAERS Safety Report 8827675 (Version 2)
Quarter: 2012Q4

REPORT INFORMATION
  Report Type: 
  Country: US (occurrence: US)
  Receive Date: 20121008
  Receipt Date: 20121105
  Transmission Date: 20130627
  Serious: No
  Sender: FDA-Public Use
  Company Number: US-PFIZER INC-2012244999

PATIENT
  Age: 35 Year
  Sex: Male
  Weight: 80.3 kg

DRUGS (5)
  1. SUTENT [Suspect]
     Indication: CONNECTIVE TISSUE NEOPLASM
     Dosage: 50 mg, 1x/day
     Dates: start: 20120913, end: 20120925
  2. SUTENT [Suspect]
     Indication: SOFT TISSUE NEOPLASM
     Dosage: 50 mg, every third day
     Dates: start: 20121018
  3. HYDROCODONE [Concomitant]
     Indication: BACK PAIN
     Dosage: UNK
  4. HYDROCODONE [Concomitant]
     Indication: GENERALIZED ACHING
  5. ALKA-SELTZER [Concomitant]
     Dosage: UNK

REACTIONS (4)
  - Drug intolerance [Unknown]
  - Diarrhoea [Unknown]
  - Abdominal pain upper [Unknown]
  - Dysgeusia [Unknown]
